FAERS Safety Report 5635262-6 (Version None)
Quarter: 2008Q1

REPORT INFORMATION
  Report Type: 
  Country: None (occurrence: None)
  Receive Date: 20080131
  Receipt Date: 20071109
  Transmission Date: 20080703
  Serious: No
  Sender: FDA-Public Use
  Company Number: 163-21880-07110626

PATIENT
  Age: 77 Year
  Sex: Female
  Weight: 59.4212 kg

DRUGS (7)
  1. REVLIMID [Suspect]
     Indication: MULTIPLE MYELOMA
     Dosage: 10 MG, DAILY X 21 DAYS, ORAL
     Route: 048
     Dates: start: 20071017, end: 20071107
  2. PREDNISONE TAB [Concomitant]
  3. HYDROCHLOROTHIAZIDE [Concomitant]
  4. FOSAMAX [Concomitant]
  5. DIGOXIN [Concomitant]
  6. POTASSIUM (POTASSIUM) [Concomitant]
  7. BENICAR [Concomitant]

REACTIONS (3)
  - FATIGUE [None]
  - HAEMOGLOBIN DECREASED [None]
  - MUSCLE SPASMS [None]
